FAERS Safety Report 6912170-1 (Version None)
Quarter: 2010Q3

REPORT INFORMATION
  Report Type: 
  Country: None (occurrence: None)
  Receive Date: 20100806
  Receipt Date: 20071214
  Transmission Date: 20110219
  Serious: No
  Sender: FDA-Public Use
  Company Number: US-PFIZER INC-2007106237

PATIENT
  Sex: Male
  Weight: 75 kg

DRUGS (7)
  1. DETROL LA [Suspect]
     Indication: POLLAKIURIA
     Dates: start: 20071213
  2. ALL OTHER THERAPEUTIC PRODUCTS [Concomitant]
     Indication: GALLBLADDER DISORDER
  3. PROTONIX [Concomitant]
     Indication: GASTROOESOPHAGEAL REFLUX DISEASE
  4. STOOL SOFTENER [Concomitant]
  5. ALEVE (CAPLET) [Concomitant]
  6. MULTI-VITAMINS [Concomitant]
  7. ACETYLSALICYLIC ACID SRT [Concomitant]

REACTIONS (3)
  - DRY MOUTH [None]
  - HEADACHE [None]
  - URINE FLOW DECREASED [None]
